FAERS Safety Report 24534807 (Version 1)
Quarter: 2024Q4

REPORT INFORMATION
  Report Type: Report from Study
  Country: CA (occurrence: CA)
  Receive Date: 20241022
  Receipt Date: 20241022
  Transmission Date: 20250114
  Serious: Yes (Hospitalization)
  Sender: VIFOR (INTERNATIONAL) INC.
  Company Number: CA-Vifor (International) Inc.-VIT-2023-09493

PATIENT
  Age: 67 Year
  Sex: Male

DRUGS (1)
  1. VELTASSA [Suspect]
     Active Substance: PATIROMER
     Indication: Blood potassium increased
     Dosage: SACHET
     Route: 048
     Dates: start: 20230104

REACTIONS (3)
  - Hospitalisation [Unknown]
  - Product dose omission in error [Unknown]
  - Product dose omission issue [Unknown]

NARRATIVE: CASE EVENT DATE: 20231001
